FAERS Safety Report 5255862-5 (Version None)
Quarter: 2007Q1

REPORT INFORMATION
  Report Type: 
  Country: None (occurrence: None)
  Receive Date: 20070301
  Receipt Date: 20070226
  Transmission Date: 20070707
  Serious: Yes (Other)
  Sender: FDA-Public Use
  Company Number: 2007-035DP

PATIENT
  Age: 35 Year
  Sex: Male

DRUGS (1)
  1. ZONISAMIDE [Suspect]
     Indication: WEIGHT CONTROL

REACTIONS (1)
  - VANISHING BILE DUCT SYNDROME [None]
